FAERS Safety Report 21532511 (Version 1)
Quarter: 2022Q4

REPORT INFORMATION
  Report Type: Report from Study
  Country: US (occurrence: US)
  Receive Date: 20221101
  Receipt Date: 20221101
  Transmission Date: 20230113
  Serious: Yes (Other)
  Sender: FDA-Public Use
  Company Number: US-ORGANON-O2209USA002210

PATIENT
  Age: 21 Year
  Sex: Female
  Weight: 128.35 kg

DRUGS (1)
  1. IMPLANON [Suspect]
     Active Substance: ETONOGESTREL
     Dosage: 1 IMPLANT IN LEFT UPPER ARM; DOSE/FREQUENCY: 68 MILLIGRAM (MG)
     Route: 059
     Dates: start: 20190812

REACTIONS (4)
  - Device expulsion [Unknown]
  - Implant site infection [Unknown]
  - Complication associated with device [Unknown]
  - Incorrect product administration duration [Unknown]

NARRATIVE: CASE EVENT DATE: 20220812
